FAERS Safety Report 9156175 (Version 1)
Quarter: 2013Q1

REPORT INFORMATION
  Report Type: Spontaneous
  Country: US (occurrence: US)
  Receive Date: 20130123
  Receipt Date: 20130123
  Transmission Date: 20140127
  Serious: No
  Sender: FDA-Public Use
  Company Number: US-BRACCO-008033

PATIENT
  Age: 37 Year
  Sex: Male
  Weight: 96 kg

DRUGS (2)
  1. MULTIHANCE [Suspect]
     Indication: NUCLEAR MAGNETIC RESONANCE IMAGING BRAIN
     Route: 042
     Dates: start: 20120511, end: 20120511
  2. MULTIHANCE [Suspect]
     Indication: VERTIGO
     Route: 042
     Dates: start: 20120511, end: 20120511

REACTIONS (3)
  - Flushing [Recovered/Resolved]
  - Urticaria [Recovered/Resolved]
  - Cough [Recovered/Resolved]
